FAERS Safety Report 6456118-5 (Version None)
Quarter: 2009Q4

REPORT INFORMATION
  Report Type: 
  Country: None (occurrence: None)
  Receive Date: 20091125
  Receipt Date: 20091118
  Transmission Date: 20100525
  Serious: Yes (Hospitalization, Other)
  Sender: FDA-Public Use
  Company Number: US-JNJFOC-20091105733

PATIENT
  Sex: Female
  Weight: 79.38 kg

DRUGS (3)
  1. REMICADE [Suspect]
     Indication: CROHN'S DISEASE
     Route: 042
  2. ASACOL [Concomitant]
  3. IMURAN [Concomitant]
     Dosage: FOR YEARS

REACTIONS (1)
  - INTESTINAL RESECTION [None]
